FAERS Safety Report 24611070 (Version 1)
Quarter: 2024Q4

REPORT INFORMATION
  Report Type: Spontaneous
  Country: FR (occurrence: FR)
  Receive Date: 20241113
  Receipt Date: 20241113
  Transmission Date: 20250114
  Serious: Yes (Death, Congenital Anomaly, Other)
  Sender: STRIDES
  Company Number: FR-STRIDES ARCOLAB LIMITED-2024SP014543

PATIENT

DRUGS (5)
  1. ENTECAVIR [Suspect]
     Active Substance: ENTECAVIR
     Indication: Product used for unknown indication
     Dosage: UNK (THE PATIENT^S MOTHER RECEIVED 1 COURSE OF ENTECAVIR 200 MILLIGRAM PER DAY FOR UNKNOWN INDICATIO
     Route: 064
     Dates: start: 20231110, end: 20240202
  2. TENOFOVIR DISOPROXIL FUMARATE [Suspect]
     Active Substance: TENOFOVIR DISOPROXIL FUMARATE
     Indication: Product used for unknown indication
     Dosage: UNK (THE PATIENT^S MOTHER RECEIVED 2 COURSES OF TENOFOVIR DISOPROXIL AT A DOSE OF 245 MILLIGRAM PER
     Route: 064
     Dates: start: 20231110, end: 20240202
  3. EMTRICITABINE [Suspect]
     Active Substance: EMTRICITABINE
     Indication: Product used for unknown indication
     Dosage: UNK (THE PATIENT^S MOTHER RECEIVED 1 COURSE OF EMTRICITABINE AT A DOSE OF 200 MILLIGRAM PER DAY FOR
     Route: 064
     Dates: start: 20231110, end: 20240202
  4. DOLUTEGRAVIR SODIUM [Suspect]
     Active Substance: DOLUTEGRAVIR SODIUM
     Indication: Product used for unknown indication
     Dosage: UNK (THE PATIENT^S MOTHER RECEIVED 1 COURSE OF DOLUTEGRAVIR SODIUM 50 MILLIGRAM FILM-COATED TABLET A
     Route: 064
     Dates: start: 20231110, end: 20240202
  5. DOLUTEGRAVIR SODIUM\LAMIVUDINE [Suspect]
     Active Substance: DOLUTEGRAVIR SODIUM\LAMIVUDINE
     Indication: Product used for unknown indication
     Dosage: UNK (THE PATIENT^S MOTHER RECEIVED 1 COURSE OF DOLUTEGRAVIR SODIUM, LAMIVUDINE 50/300 MILLIGRAM FILM
     Route: 064
     Dates: start: 20240202, end: 20240419

REACTIONS (2)
  - Congenital anomaly [Fatal]
  - Foetal exposure during pregnancy [Unknown]

NARRATIVE: CASE EVENT DATE: 20231110
